FAERS Safety Report 9499091 (Version 2)
Quarter: 2013Q4

REPORT INFORMATION
  Report Type: Spontaneous
  Country: US (occurrence: US)
  Receive Date: 20130904
  Receipt Date: 20131001
  Transmission Date: 20140711
  Serious: Yes (Hospitalization, Other)
  Sender: FDA-Public Use
  Company Number: US-RB-057907-13

PATIENT
  Age: 21 Year
  Sex: Male

DRUGS (10)
  1. SUBOXONE FILM [Suspect]
     Indication: DRUG DEPENDENCE
     Dosage: SUBOXONE FILM
     Route: 060
     Dates: start: 2011, end: 2011
  2. SUBOXONE FILM [Suspect]
     Dosage: SUBOXONE FILM
     Route: 060
     Dates: start: 201208
  3. XANAX [Suspect]
     Indication: ANXIETY
     Dosage: DOSING DETAILS UNKNOWN
     Route: 065
  4. AMBIEN [Suspect]
     Indication: INSOMNIA
     Dosage: DOSING DETAILS UNKNOWN; DAILY
     Route: 048
  5. MARIJUANA [Suspect]
     Indication: SUBSTANCE USE
     Dosage: DOSING DETAILS UNKNOWN
     Route: 055
  6. KLONOPIN [Suspect]
     Indication: ANXIETY
     Route: 048
  7. PROZAC [Suspect]
     Indication: DEPRESSION
     Dosage: DOSING DETAILS UNKNOWN
     Route: 065
  8. LEXAPRO [Suspect]
     Indication: DEPRESSION
     Dosage: DOSING DETAILS UNKNOWN
     Route: 065
  9. CYMBALTA [Suspect]
     Indication: DEPRESSION
     Dosage: DOSING DETAILS UNKNOWN
     Route: 065
  10. ZOLOFT [Suspect]
     Indication: DEPRESSION
     Dosage: DOSING DETAILS UNKNOWN;
     Route: 048
     Dates: start: 201307

REACTIONS (9)
  - Overdose [Not Recovered/Not Resolved]
  - Convulsion [Recovered/Resolved]
  - Depression [Not Recovered/Not Resolved]
  - Insomnia [Not Recovered/Not Resolved]
  - Anxiety [Not Recovered/Not Resolved]
  - Suicidal ideation [Not Recovered/Not Resolved]
  - Affect lability [Recovering/Resolving]
  - Drug abuse [Not Recovered/Not Resolved]
  - Drug dependence [Recovered/Resolved]
